FAERS Safety Report 11104907 (Version 1)
Quarter: 2015Q2

REPORT INFORMATION
  Report Type: Report from Study
  Country: US (occurrence: US)
  Receive Date: 20150511
  Receipt Date: 20150511
  Transmission Date: 20150821
  Serious: Yes (Other)
  Sender: FDA-Public Use
  Company Number: US-ALEXION PHARMACEUTICALS INC.-A201501568

PATIENT

DRUGS (1)
  1. SOLIRIS [Suspect]
     Active Substance: ECULIZUMAB
     Indication: PRODUCT USED FOR UNKNOWN INDICATION
     Route: 042

REACTIONS (9)
  - Disorientation [Recovered/Resolved]
  - Cold sweat [Recovered/Resolved]
  - Pharyngitis [Unknown]
  - Malaise [Unknown]
  - Heart rate decreased [Recovered/Resolved]
  - Nasal congestion [Unknown]
  - Abasia [Recovered/Resolved]
  - Hypotension [Recovered/Resolved]
  - Nasopharyngitis [Unknown]

NARRATIVE: CASE EVENT DATE: 20150318
